FAERS Safety Report 6268206-7 (Version None)
Quarter: 2009Q3

REPORT INFORMATION
  Report Type: 
  Country: None (occurrence: None)
  Receive Date: 20090714
  Receipt Date: 20090714
  Transmission Date: 20100115
  Serious: Yes (Other)
  Sender: FDA-Public Use
  Company Number: None

PATIENT
  Age: 69 Year
  Sex: Female
  Weight: 80.7403 kg

DRUGS (2)
  1. LIPITOR [Suspect]
     Indication: BLOOD CHOLESTEROL INCREASED
     Dosage: ONE DAILY PO ESTIMATE 5 OR 6 YEARS
     Route: 048
     Dates: start: 20030101, end: 20090513
  2. LIPITOR [Suspect]
     Indication: DIABETES MELLITUS
     Dosage: ONE DAILY PO ESTIMATE 5 OR 6 YEARS
     Route: 048
     Dates: start: 20030101, end: 20090513

REACTIONS (9)
  - APATHY [None]
  - ASTHENIA [None]
  - DIARRHOEA [None]
  - FATIGUE [None]
  - GAIT DISTURBANCE [None]
  - HEADACHE [None]
  - IMPAIRED SELF-CARE [None]
  - PAIN IN EXTREMITY [None]
  - WALKING AID USER [None]
